FAERS Safety Report 9536452 (Version 1)
Quarter: 2013Q2

REPORT INFORMATION
  Report Type: Spontaneous
  Country: US (occurrence: None)
  Receive Date: 20130507
  Receipt Date: 20130507
  Transmission Date: 20140414
  Serious: Yes (Other)
  Sender: FDA-Public Use
  Company Number: PHEH2012US024915

PATIENT
  Sex: Male

DRUGS (1)
  1. AFINITOR (RAD) UNKNOWN [Suspect]
     Indication: BENIGN NEOPLASM OF ISLETS OF LANGERHANS
     Route: 048
     Dates: start: 201206

REACTIONS (2)
  - Dyspnoea [None]
  - Cardiac failure congestive [None]
